FAERS Safety Report 7430952-7 (Version None)
Quarter: 2011Q2

REPORT INFORMATION
  Report Type: 
  Country: None (occurrence: None)
  Receive Date: 20110421
  Receipt Date: 20110412
  Transmission Date: 20111010
  Serious: Yes (Hospitalization, Other)
  Sender: FDA-Public Use
  Company Number: PHHY2011FR31777

PATIENT
  Age: 84 Year
  Sex: Female

DRUGS (2)
  1. HEPARIN [Suspect]
  2. WARFARIN [Suspect]

REACTIONS (7)
  - THROMBOSIS [None]
  - THROMBOCYTOPENIA [None]
  - PNEUMONIA [None]
  - ACCIDENTAL OVERDOSE [None]
  - RENAL IMPAIRMENT [None]
  - DRUG INEFFECTIVE [None]
  - PLATELET COUNT DECREASED [None]
